FAERS Safety Report 7502042-6 (Version None)
Quarter: 2011Q2

REPORT INFORMATION
  Report Type: 
  Country: None (occurrence: None)
  Receive Date: 20110525
  Receipt Date: 20110516
  Transmission Date: 20111010
  Serious: Yes (Life-Threatening, Hospitalization, Other)
  Sender: FDA-Public Use
  Company Number: JP-CELGENEUS-087-21880-11020777

PATIENT
  Sex: Male

DRUGS (9)
  1. DEXAMETHASONE [Concomitant]
     Dosage: 20 MILLIGRAM
     Route: 048
     Dates: start: 20110126, end: 20110126
  2. REVLIMID [Suspect]
     Dosage: 5 MILLIGRAM
     Route: 048
     Dates: start: 20110119, end: 20110131
  3. DEXAMETHASONE [Concomitant]
     Indication: MULTIPLE MYELOMA
     Dosage: 10 MILLIGRAM
     Route: 048
     Dates: start: 20101215, end: 20101229
  4. DIAMOX [Concomitant]
     Dosage: 500 MILLIGRAM
     Route: 048
     Dates: start: 20101215, end: 20101223
  5. CLARITIN [Concomitant]
     Indication: PROPHYLAXIS
     Dosage: 10 MILLIGRAM
     Route: 048
     Dates: start: 20101215, end: 20101217
  6. WARFARIN SODIUM [Concomitant]
     Indication: PROPHYLAXIS
     Dosage: 2 MILLIGRAM
     Route: 048
     Dates: start: 20101214, end: 20101217
  7. RIBALL [Concomitant]
     Indication: PROPHYLAXIS
     Dosage: 200 MILLIGRAM
     Route: 048
     Dates: start: 20101215, end: 20101217
  8. DEXAMETHASONE [Concomitant]
     Dosage: 20 MILLIGRAM
     Route: 048
     Dates: start: 20110119, end: 20110119
  9. REVLIMID [Suspect]
     Indication: MULTIPLE MYELOMA
     Dosage: 5 MILLIGRAM
     Route: 048
     Dates: start: 20101215, end: 20110104

REACTIONS (6)
  - RENAL FAILURE [None]
  - NEUTROPENIA [None]
  - INFECTION [None]
  - TUMOUR LYSIS SYNDROME [None]
  - THROMBOCYTOPENIA [None]
  - HAEMORRHAGE [None]
